FAERS Safety Report 17000247 (Version 1)
Quarter: 2019Q4

REPORT INFORMATION
  Report Type: Spontaneous
  Country: US (occurrence: US)
  Receive Date: 20190925
  Receipt Date: 20190925
  Transmission Date: 20200122
  Serious: Yes (Hospitalization, Other)
  Sender: FDA-Public Use
  Company Number: None

PATIENT
  Age: 26 Year
  Sex: Male
  Weight: 54.43 kg

DRUGS (14)
  1. HOMEOPATHIC HERBS [Concomitant]
  2. GABA-METHYLCOBALAMIN (METHYL B-12) [Concomitant]
  3. GABA (A NEUROTRANSMITTER RELAXER) [Concomitant]
  4. BLACK COHASH [Concomitant]
  5. LITHOBID [Suspect]
     Active Substance: LITHIUM CARBONATE
     Indication: AFFECTIVE DISORDER
     Route: 048
     Dates: start: 197804, end: 201510
  6. BETA CRATEME (VITA-A) [Concomitant]
  7. CHROMIUM PICCOLATE [Concomitant]
  8. MULT-VITAMIN [Concomitant]
  9. MULT-VITAMIN [Concomitant]
  10. NAPROXEN. [Concomitant]
     Active Substance: NAPROXEN
  11. 2 HERBAL SUPPLEMENTS [Concomitant]
  12. MINERAL SUPPLEMENTS [Concomitant]
     Active Substance: MINERALS
  13. FERROUS (IRON) [Concomitant]
  14. NAPROXEN. [Concomitant]
     Active Substance: NAPROXEN

REACTIONS (1)
  - Acne [None]
